FAERS Safety Report 9425135 (Version 1)
Quarter: 2013Q3

REPORT INFORMATION
  Report Type: Spontaneous
  Country: GB (occurrence: GB)
  Receive Date: 20130729
  Receipt Date: 20130729
  Transmission Date: 20140515
  Serious: Yes (Other)
  Sender: FDA-Public Use
  Company Number: GB-PFIZER INC-2013216937

PATIENT
  Age: 34 Year
  Sex: Male

DRUGS (3)
  1. PREGABALIN [Suspect]
     Indication: PAIN IN EXTREMITY
     Dosage: 300 MG, 2X/DAY
     Route: 048
  2. PARACETAMOL [Concomitant]
     Indication: ANALGESIC THERAPY
  3. METHADONE [Concomitant]
     Indication: ANALGESIC THERAPY

REACTIONS (2)
  - Drug withdrawal syndrome [Recovered/Resolved]
  - Feeling abnormal [Unknown]
